FAERS Safety Report 12202390 (Version 2)
Quarter: 2016Q1

REPORT INFORMATION
  Report Type: Spontaneous
  Country: US (occurrence: US)
  Receive Date: 20160322
  Receipt Date: 20160325
  Transmission Date: 20160526
  Serious: Yes (Death, Hospitalization)
  Sender: FDA-Public Use
  Company Number: PHEH2016US006713

PATIENT
  Age: 51 Year
  Sex: Male

DRUGS (1)
  1. ZOMETA [Suspect]
     Active Substance: ZOLEDRONIC ACID
     Indication: PLASMA CELL MYELOMA
     Dosage: MONTHLY
     Route: 041

REACTIONS (6)
  - Asthenia [Unknown]
  - Gingival ulceration [Unknown]
  - Pneumonia viral [Fatal]
  - Pneumonia bacterial [Unknown]
  - Osteonecrosis of jaw [Unknown]
  - Tooth loss [Unknown]
